FAERS Safety Report 6167032-7 (Version None)
Quarter: 2009Q2

REPORT INFORMATION
  Report Type: 
  Country: None (occurrence: None)
  Receive Date: 20090424
  Receipt Date: 20090413
  Transmission Date: 20091009
  Serious: Yes (Hospitalization, Other)
  Sender: FDA-Public Use
  Company Number: AR-PFIZER INC-2009198889

PATIENT

DRUGS (3)
  1. CHAMPIX [Suspect]
     Indication: SMOKING CESSATION THERAPY
     Dosage: .5 MG, 2X/DAY
     Route: 048
     Dates: start: 20080116, end: 20080301
  2. ATENOLOL [Concomitant]
     Indication: HYPERTENSION
     Dosage: UNK
     Route: 048
  3. AMLODIPINE [Concomitant]
     Indication: HYPERTENSION
     Dosage: UNK
     Route: 048

REACTIONS (8)
  - BLOOD CHOLESTEROL INCREASED [None]
  - NIGHTMARE [None]
  - OEDEMA PERIPHERAL [None]
  - OESOPHAGITIS [None]
  - PRURITUS [None]
  - STENT PLACEMENT [None]
  - VEIN DISORDER [None]
  - WEIGHT INCREASED [None]
